FAERS Safety Report 8801931 (Version 1)
Quarter: 2012Q4

REPORT INFORMATION
  Report Type: 
  Country: US (occurrence: US)
  Receive Date: 20120921
  Receipt Date: 20120921
  Transmission Date: 20130627
  Serious: No
  Sender: FDA-Public Use
  Company Number: US-MYLANLABS-2012S1014262

PATIENT
  Age: 67 Year
  Sex: Male

DRUGS (3)
  1. LATANOPROST [Suspect]
     Indication: GLAUCOMA
     Route: 047
     Dates: start: 2012, end: 2012
  2. LATANOPROST [Suspect]
     Indication: GLAUCOMA
     Route: 047
  3. DOXAZOSIN [Concomitant]
     Route: 048

REACTIONS (3)
  - Vision blurred [Recovering/Resolving]
  - Photophobia [Recovering/Resolving]
  - Eye irritation [Recovering/Resolving]
